FAERS Safety Report 6057461-4 (Version None)
Quarter: 2009Q1

REPORT INFORMATION
  Report Type: 
  Country: None (occurrence: None)
  Receive Date: 20090126
  Receipt Date: 20090126
  Transmission Date: 20090719
  Serious: No
  Sender: FDA-Public Use
  Company Number: None

PATIENT
  Age: 53 Year
  Sex: Female
  Weight: 75.2971 kg

DRUGS (2)
  1. ALENDRONATE SODIUM [Suspect]
     Indication: BONE DISORDER
     Dosage: 1 WEEKLY PO
     Route: 048
     Dates: start: 20090110, end: 20090124
  2. ALENDRONATE SODIUM [Suspect]
     Indication: PROPHYLAXIS
     Dosage: 1 WEEKLY PO
     Route: 048
     Dates: start: 20090110, end: 20090124

REACTIONS (7)
  - ABDOMINAL PAIN [None]
  - CHEST PAIN [None]
  - CONSTIPATION [None]
  - DYSPNOEA [None]
  - MYALGIA [None]
  - OEDEMA PERIPHERAL [None]
  - PAIN [None]
